FAERS Safety Report 5464337-X (Version None)
Quarter: 2007Q3

REPORT INFORMATION
  Report Type: 
  Country: None (occurrence: None)
  Receive Date: 20070921
  Receipt Date: 20070912
  Transmission Date: 20080115
  Serious: Yes (Other)
  Sender: FDA-Public Use
  Company Number: HQWYE868702JUL07

PATIENT
  Age: 74 Year
  Sex: Female

DRUGS (6)
  1. PREMARIN [Suspect]
     Indication: POSTMENOPAUSE
     Route: 048
     Dates: start: 19780101, end: 20070630
  2. TUMS [Concomitant]
     Indication: OSTEOPENIA
     Dosage: 1500 MGM
     Route: 065
  3. ESOMEPRAZOLE MAGNESIUM [Concomitant]
     Indication: GASTROOESOPHAGEAL REFLUX DISEASE
     Dosage: UNKNOWN
     Route: 065
  4. ESOMEPRAZOLE MAGNESIUM [Concomitant]
     Indication: EROSIVE OESOPHAGITIS
  5. MULTI-VITAMINS [Concomitant]
     Dosage: UNKNOWN
     Route: 065
  6. VITAMIN D [Concomitant]
     Dosage: 50000 UNIT EVERY 1 WK
     Route: 065

REACTIONS (5)
  - ALOPECIA [None]
  - CHORIORETINAL DISORDER [None]
  - PAPILLOEDEMA [None]
  - RETINAL VEIN OCCLUSION [None]
  - VISUAL ACUITY REDUCED [None]
